FAERS Safety Report 4733541-8 (Version None)
Quarter: 2005Q3

REPORT INFORMATION
  Report Type: 
  Country: None (occurrence: None)
  Receive Date: 20050729
  Receipt Date: 20050719
  Transmission Date: 20060218
  Serious: Yes (Hospitalization)
  Sender: FDA-Public Use
  Company Number: 310009M05FRA

PATIENT
  Age: 38 Year
  Sex: Female
  Weight: 64 kg

DRUGS (1)
  1. GONAL-F [Suspect]
     Indication: OVULATION INDUCTION
     Dates: start: 20050707

REACTIONS (3)
  - ANGIONEUROTIC OEDEMA [None]
  - BRONCHOSPASM [None]
  - PRURIGO [None]
